FAERS Safety Report 23411197 (Version 2)
Quarter: 2024Q4

REPORT INFORMATION
  Report Type: Spontaneous
  Country: US (occurrence: US)
  Receive Date: 20240117
  Receipt Date: 20241220
  Transmission Date: 20250115
  Serious: Yes (Other)
  Sender: NOVO NORDISK
  Company Number: US-NOVOPROD-1112529

PATIENT
  Sex: Female

DRUGS (1)
  1. OZEMPIC [Suspect]
     Active Substance: SEMAGLUTIDE
     Indication: Product used for unknown indication
     Dosage: 0.25MG
     Route: 058
     Dates: start: 20230201

REACTIONS (6)
  - Surgery [Unknown]
  - Weight decreased [Unknown]
  - Abdominal distension [Not Recovered/Not Resolved]
  - Wrong technique in product usage process [Unknown]
  - Expired product administered [Unknown]
  - Off label use [Unknown]

NARRATIVE: CASE EVENT DATE: 20230201
